APPROVED DRUG PRODUCT: MIDAZOLAM HYDROCHLORIDE
Active Ingredient: MIDAZOLAM HYDROCHLORIDE
Strength: EQ 2MG BASE/ML
Dosage Form/Route: SYRUP;ORAL
Application: A077115 | Product #001
Applicant: PHARMACEUTICAL ASSOCIATES INC
Approved: Sep 9, 2005 | RLD: No | RS: No | Type: DISCN